FAERS Safety Report 25018145 (Version 5)
Quarter: 2025Q4

REPORT INFORMATION
  Report Type: Report from Study
  Country: GB (occurrence: GB)
  Receive Date: 20250227
  Receipt Date: 20251028
  Transmission Date: 20260118
  Serious: Yes (Other)
  Sender: NOVARTIS
  Company Number: GB-002147023-NVSC2025GB032386

PATIENT
  Age: 60 Year
  Sex: Female

DRUGS (3)
  1. MAYZENT [Suspect]
     Active Substance: SIPONIMOD
     Indication: Secondary progressive multiple sclerosis
     Dosage: 2 MG, QD
     Route: 048
     Dates: start: 20230221
  2. MAYZENT [Suspect]
     Active Substance: SIPONIMOD
     Indication: Relapsing-remitting multiple sclerosis
     Dosage: UNK, OTHER
     Route: 048
  3. MAYZENT [Suspect]
     Active Substance: SIPONIMOD
     Dosage: 1 MG, QD
     Route: 048

REACTIONS (16)
  - Blindness unilateral [Recovered/Resolved]
  - Lymphocyte count decreased [Unknown]
  - Herpes zoster [Recovered/Resolved]
  - Rash [Unknown]
  - Paronychia [Recovered/Resolved]
  - Influenza like illness [Recovered/Resolved]
  - Pain [Unknown]
  - Feeling of body temperature change [Unknown]
  - Lethargy [Unknown]
  - Eye pain [Recovered/Resolved]
  - Eye irritation [Recovered/Resolved]
  - Abdominal pain upper [Recovered/Resolved]
  - Diarrhoea [Recovered/Resolved]
  - Nausea [Not Recovered/Not Resolved]
  - Dizziness [Not Recovered/Not Resolved]
  - Malaise [Not Recovered/Not Resolved]

NARRATIVE: CASE EVENT DATE: 20241101
